FAERS Safety Report 6263053-4 (Version None)
Quarter: 2009Q3

REPORT INFORMATION
  Report Type: 
  Country: None (occurrence: None)
  Receive Date: 20090708
  Receipt Date: 20090708
  Transmission Date: 20100115
  Serious: Yes (Hospitalization)
  Sender: FDA-Public Use
  Company Number: None

PATIENT
  Age: 81 Year
  Sex: Female
  Weight: 48.6 kg

DRUGS (2)
  1. COUMADIN [Suspect]
     Dosage: 4MG AT BEDTIME PO
     Route: 048
     Dates: start: 20090626, end: 20090701
  2. FLUCONAZOLE [Suspect]
     Dosage: 200MG EVERY 24 HOURS PO
     Route: 048
     Dates: start: 20090626, end: 20090701

REACTIONS (2)
  - INTERNATIONAL NORMALISED RATIO INCREASED [None]
  - PROTHROMBIN TIME PROLONGED [None]
